FAERS Safety Report 7315833-1 (Version None)
Quarter: 2011Q1

REPORT INFORMATION
  Report Type: 
  Country: None (occurrence: None)
  Receive Date: 20110225
  Receipt Date: 20110221
  Transmission Date: 20110831
  Serious: Yes (Death, Other)
  Sender: FDA-Public Use
  Company Number: US-ROXANE LABORATORIES, INC.-2011-RO-00201RO

PATIENT
  Age: 38 Year
  Sex: Male

DRUGS (3)
  1. DEXAMETHASONE [Suspect]
     Indication: BRAIN NEOPLASM
     Dosage: 2 G
     Route: 048
  2. BEVACIZUMAB [Suspect]
     Indication: GLIOBLASTOMA MULTIFORME
  3. IRINOTECAN [Suspect]
     Indication: GLIOBLASTOMA MULTIFORME

REACTIONS (4)
  - DRUG DEPENDENCE [None]
  - TOXICITY TO VARIOUS AGENTS [None]
  - SKIN ULCER [None]
  - GLIOBLASTOMA MULTIFORME [None]
